FAERS Safety Report 4672621-2 (Version None)
Quarter: 2005Q2

REPORT INFORMATION
  Report Type: 
  Country: None (occurrence: None)
  Receive Date: 20050524
  Receipt Date: 20050516
  Transmission Date: 20051028
  Serious: Yes (Hospitalization)
  Sender: FDA-Public Use
  Company Number: GB-BRISTOL-MYERS SQUIBB COMPANY-12968822

PATIENT
  Age: 88 Year
  Sex: Female

DRUGS (4)
  1. CISPLATIN [Suspect]
     Indication: LIP AND/OR ORAL CAVITY CANCER
     Route: 042
     Dates: start: 20050302
  2. SODIUM BICARBONATE [Concomitant]
     Route: 048
  3. RIBOFLAVIN TAB [Concomitant]
     Route: 061
  4. ORAMORPH SR [Concomitant]
     Route: 048

REACTIONS (1)
  - NEUTROPENIC SEPSIS [None]
